FAERS Safety Report 6692845-2 (Version None)
Quarter: 2010Q2

REPORT INFORMATION
  Report Type: 
  Country: None (occurrence: None)
  Receive Date: 20100422
  Receipt Date: 20100413
  Transmission Date: 20101027
  Serious: Yes (Disabling)
  Sender: FDA-Public Use
  Company Number: B0648965A

PATIENT
  Age: 60 Year
  Sex: Female

DRUGS (6)
  1. OFATUMUMAB [Suspect]
     Indication: LYMPHOCYTIC LEUKAEMIA
     Route: 042
     Dates: start: 20070801
  2. CHLORAMBUCIL [Concomitant]
     Indication: LYMPHOCYTIC LEUKAEMIA
  3. FLUDARABINE [Concomitant]
     Indication: LYMPHOCYTIC LEUKAEMIA
  4. CYCLOPHOSPHAMIDE [Concomitant]
     Indication: LYMPHOCYTIC LEUKAEMIA
  5. RITUXIMAB [Concomitant]
     Indication: LYMPHOCYTIC LEUKAEMIA
  6. ALEMTUZUMAB [Concomitant]
     Indication: LYMPHOCYTIC LEUKAEMIA

REACTIONS (9)
  - ANAEMIA [None]
  - C-REACTIVE PROTEIN INCREASED [None]
  - CELLULITIS [None]
  - CITROBACTER INFECTION [None]
  - HYPOGLOBULINAEMIA [None]
  - PAIN IN EXTREMITY [None]
  - PYREXIA [None]
  - SPLENOMEGALY [None]
  - TONSILLAR HYPERTROPHY [None]
